FAERS Safety Report 15580738 (Version 1)
Quarter: 2018Q4

REPORT INFORMATION
  Report Type: Spontaneous
  Country: US (occurrence: US)
  Receive Date: 20181104
  Receipt Date: 20181104
  Transmission Date: 20190205
  Serious: Yes (Life-Threatening, Hospitalization, Disabling, Other)
  Sender: FDA-Public Use
  Company Number: None

PATIENT
  Age: 78 Year
  Sex: Male

DRUGS (1)
  1. KEYTRUDA [Suspect]
     Active Substance: PEMBROLIZUMAB
     Indication: BLADDER CANCER
     Dosage: OTHER FREQUENCY:ONE EVERY 3 SEEKS;?
     Dates: start: 20181104

REACTIONS (2)
  - Cardiac pacemaker insertion [None]
  - Multi-organ disorder [None]

NARRATIVE: CASE EVENT DATE: 20181030
